FAERS Safety Report 14170339 (Version 4)
Quarter: 2018Q2

REPORT INFORMATION
  Report Type: Spontaneous
  Country: IT (occurrence: IT)
  Receive Date: 20171108
  Receipt Date: 20180511
  Transmission Date: 20180711
  Serious: Yes (Other)
  Sender: FDA-Public Use
  Company Number: IT-PFIZER INC-2017476660

PATIENT
  Age: 14 Year
  Sex: Female
  Weight: 48 kg

DRUGS (3)
  1. CIPRALEX [Suspect]
     Active Substance: ESCITALOPRAM OXALATE
     Dosage: 10 DF, TOTAL
     Route: 048
     Dates: start: 20171016, end: 20171016
  2. XANAX [Suspect]
     Active Substance: ALPRAZOLAM
     Dosage: 12 DF, TOTAL
     Route: 048
     Dates: start: 20171016, end: 20171016
  3. HALDOL [Suspect]
     Active Substance: HALOPERIDOL
     Dosage: 15 ML, TOTAL
     Route: 048
     Dates: start: 20171016, end: 20171016

REACTIONS (6)
  - Poisoning deliberate [Unknown]
  - Sopor [Unknown]
  - Bradyphrenia [Unknown]
  - Intentional overdose [Unknown]
  - Sluggishness [Unknown]
  - Intentional self-injury [Unknown]

NARRATIVE: CASE EVENT DATE: 20171016
